FAERS Safety Report 4336484-7 (Version None)
Quarter: 2004Q2

REPORT INFORMATION
  Report Type: 
  Country: None (occurrence: None)
  Receive Date: 20040407
  Receipt Date: 20040322
  Transmission Date: 20050107
  Serious: Yes (Hospitalization, Other)
  Sender: FDA-Public Use
  Company Number: USA040362674

PATIENT
  Age: 56 Year
  Sex: Female
  Weight: 105.2345 kg

DRUGS (2)
  1. HUMULIN N [Suspect]
     Dosage: 65 U DAY
     Dates: start: 19920101, end: 20040301
  2. NOVOLIN 70/30 [Concomitant]

REACTIONS (3)
  - CARDIAC FAILURE CONGESTIVE [None]
  - DYSPNOEA [None]
  - OSTEOARTHRITIS [None]
